FAERS Safety Report 4438641-8 (Version None)
Quarter: 2004Q3

REPORT INFORMATION
  Report Type: 
  Country: None (occurrence: None)
  Receive Date: 20040728
  Receipt Date: 20040407
  Transmission Date: 20050211
  Serious: No
  Sender: FDA-Public Use
  Company Number: USA040360510

PATIENT
  Age: 8 Year
  Sex: Male
  Weight: 23 kg

DRUGS (3)
  1. STRATTERA [Suspect]
     Indication: ATTENTION DEFICIT/HYPERACTIVITY DISORDER
     Dosage: 40 MG/1 DAY
     Dates: start: 20030101
  2. CONCERTA [Concomitant]
  3. RITALIN [Concomitant]

REACTIONS (12)
  - ABNORMAL BEHAVIOUR [None]
  - ANOREXIA [None]
  - COMMUNICATION DISORDER [None]
  - CONSTIPATION [None]
  - CONTUSION [None]
  - ENERGY INCREASED [None]
  - HYPERPHAGIA [None]
  - OVERDOSE [None]
  - PRESCRIBED OVERDOSE [None]
  - SLEEP DISORDER [None]
  - STARING [None]
  - WEIGHT DECREASED [None]
